FAERS Safety Report 7548772-1 (Version None)
Quarter: 2011Q2

REPORT INFORMATION
  Report Type: 
  Country: None (occurrence: None)
  Receive Date: 20110615
  Receipt Date: 20110613
  Transmission Date: 20111010
  Serious: Yes (Other)
  Sender: FDA-Public Use
  Company Number: US-PFIZER INC-2011129941

PATIENT
  Sex: Male
  Weight: 63.492 kg

DRUGS (1)
  1. LIPITOR [Suspect]
     Indication: BLOOD CHOLESTEROL INCREASED
     Dosage: 40 MG, 1X/DAY
     Route: 048
     Dates: start: 20070101

REACTIONS (5)
  - MEMORY IMPAIRMENT [None]
  - DEPRESSION [None]
  - ABNORMAL BEHAVIOUR [None]
  - MYOPATHY [None]
  - DIZZINESS [None]
